FAERS Safety Report 23897428 (Version 1)
Quarter: 2024Q2

REPORT INFORMATION
  Report Type: Other
  Country: IT (occurrence: IE)
  Receive Date: 20240524
  Receipt Date: 20240524
  Transmission Date: 20240715
  Serious: Yes (Other)
  Sender: FDA-Public Use
  Company Number: IE-Orchard Therapeutics-2157402

PATIENT
  Age: 8 Year
  Sex: Male

DRUGS (2)
  1. LENMELDY [Suspect]
     Active Substance: ATIDARSAGENE AUTOTEMCEL
     Indication: Metachromatic leukodystrophy
     Route: 042
     Dates: start: 20170414, end: 20170414
  2. BUSULFAN [Suspect]
     Active Substance: BUSULFAN
     Route: 042
     Dates: start: 20170410, end: 20170413

REACTIONS (1)
  - Glioma [Not Recovered/Not Resolved]

NARRATIVE: CASE EVENT DATE: 20240429
